FAERS Safety Report 21426988 (Version 1)
Quarter: 2022Q4

REPORT INFORMATION
  Report Type: Spontaneous
  Country: US (occurrence: US)
  Receive Date: 20221008
  Receipt Date: 20221008
  Transmission Date: 20230112
  Serious: Yes (Other)
  Sender: FDA-Public Use
  Company Number: US-PURDUE-USA-2020-0188655

PATIENT
  Sex: Male

DRUGS (1)
  1. HYDROMORPHONE [Suspect]
     Active Substance: HYDROMORPHONE
     Indication: Illness
     Dosage: UNK
     Route: 048

REACTIONS (12)
  - Drug dependence [Unknown]
  - Drug abuse [Unknown]
  - Muscle atrophy [Unknown]
  - Disturbance in attention [Unknown]
  - General physical condition abnormal [Unknown]
  - Mental disorder [Unknown]
  - Illness [Unknown]
  - Anxiety [Unknown]
  - Insomnia [Unknown]
  - Tremor [Unknown]
  - Migraine [Unknown]
  - Depression [Unknown]
